FAERS Safety Report 7742672-X (Version None)
Quarter: 2011Q3

REPORT INFORMATION
  Report Type: 
  Country: None (occurrence: None)
  Receive Date: 20110912
  Receipt Date: 20110907
  Transmission Date: 20111222
  Serious: Yes (Death)
  Sender: FDA-Public Use
  Company Number: GB-JNJFOC-20110805568

PATIENT
  Age: 16 Year
  Sex: Male

DRUGS (2)
  1. METHYLPHENIDATE [Suspect]
     Indication: PRODUCT USED FOR UNKNOWN INDICATION
     Dosage: 3 MONTHS PRIOR TO DEATH
     Route: 048
  2. METHYLPHENIDATE [Suspect]
     Route: 048

REACTIONS (2)
  - DEATH [None]
  - ADVERSE EVENT [None]
